FAERS Safety Report 8491614 (Version 5)
Quarter: 2014Q1

REPORT INFORMATION
  Report Type: Spontaneous
  Country: US (occurrence: US)
  Receive Date: 20120403
  Receipt Date: 20140224
  Transmission Date: 20141002
  Serious: Yes (Hospitalization, Other)
  Sender: FDA-Public Use
  Company Number: US-PFIZER INC-2012080845

PATIENT
  Age: 54 Year
  Sex: Female
  Weight: 101 kg

DRUGS (19)
  1. CELEBREX [Suspect]
     Indication: ARTHRITIS
     Dosage: 100 MG, 2X/DAY
     Route: 048
     Dates: start: 2011
  2. LYRICA [Suspect]
     Indication: NEUROPATHY PERIPHERAL
     Dosage: 100 MG, 2X/DAY
     Route: 048
     Dates: start: 2011
  3. LYRICA [Suspect]
     Dosage: 100 MG, UNK (EVERY 12 HOURS)
     Route: 048
  4. CYMBALTA [Suspect]
     Dosage: UNK
  5. ZANAFLEX [Concomitant]
     Indication: MUSCLE SPASMS
     Dosage: 5 MG AS NEEDED (IN EVERY 8 HOURS)
  6. HYDROCODONE W/ACETAMINOPHEN [Concomitant]
     Indication: PAIN
     Dosage: 10/500 MG,AS NEEDED UP TO 4 TIMES A DAY
  7. RANITIDINE [Concomitant]
     Indication: GASTROOESOPHAGEAL REFLUX DISEASE
     Dosage: 150 MG, AS NEEDED
  8. NORCO [Concomitant]
     Dosage: (10-325 MG)
  9. JANUMET XR [Concomitant]
     Dosage: UNK (50-1000MG)
     Route: 048
  10. LASIX [Concomitant]
     Dosage: 20 MG, DAILY
     Route: 048
  11. PRINIVIL [Concomitant]
     Dosage: 10 MG, DAILY
     Route: 048
  12. K-DUR [Concomitant]
     Dosage: 20 MEQ, DAILY
     Route: 048
  13. VITAMIN D2 [Concomitant]
     Dosage: UNK (50,000 UNIT)
     Route: 048
  14. ZANTAC [Concomitant]
     Dosage: 150 MG, 2X/DAY
     Route: 048
  15. CLARITIN [Concomitant]
     Dosage: 10 MG, DAILY
     Route: 048
  16. SYMBICORT [Concomitant]
     Dosage: (80.4.5 MCG) TAKE 2 PUFFS BY INHALATION 2 TIMES DAILY
  17. AMBIEN [Concomitant]
     Dosage: 10 MG, AS NEEDED (NIGHTLY)
     Route: 048
  18. VOLTAREN [Concomitant]
     Dosage: 1 %, APPLY 4 GRAM TO AFFECTED AREA 4 TIMES DAILY
     Route: 061
  19. PROVENTIL INHALER/VENTOLIN [Concomitant]
     Dosage: 90 UG, AS NEEDED (TAKE 2 PUFFS INHALATION EVERY 6 HOURS)

REACTIONS (17)
  - Fall [Unknown]
  - Head injury [Unknown]
  - Laceration [Unknown]
  - Brain contusion [Unknown]
  - Dehydration [Recovering/Resolving]
  - Malaise [Recovering/Resolving]
  - Gastroenteritis viral [Recovering/Resolving]
  - Speech disorder [Recovering/Resolving]
  - Blood glucose increased [Unknown]
  - Anxiety [Unknown]
  - Vitamin D deficiency [Unknown]
  - Dizziness [Unknown]
  - Neuropathy peripheral [Unknown]
  - Intervertebral disc degeneration [Unknown]
  - Osteoarthritis [Unknown]
  - Rhinitis perennial [Unknown]
  - Depression [Unknown]
